FAERS Safety Report 10062276 (Version 1)
Quarter: 2014Q2

REPORT INFORMATION
  Report Type: Spontaneous
  Country: US (occurrence: US)
  Receive Date: 20140407
  Receipt Date: 20140407
  Transmission Date: 20141212
  Serious: No
  Sender: FDA-Public Use
  Company Number: US-GLAXOSMITHKLINE-A1021308A

PATIENT
  Age: 23 Year
  Sex: Female
  Weight: 78.2 kg

DRUGS (2)
  1. BENLYSTA [Suspect]
     Indication: SYSTEMIC LUPUS ERYTHEMATOSUS
     Dosage: 720MG EVERY 28 DAYS
     Route: 042
     Dates: start: 20120709, end: 20121026
  2. UNKNOWN [Concomitant]

REACTIONS (2)
  - Exposure during pregnancy [Unknown]
  - Live birth [Unknown]
